FAERS Safety Report 16716958 (Version 3)
Quarter: 2019Q4

REPORT INFORMATION
  Report Type: Report from Study
  Country: US (occurrence: US)
  Receive Date: 20190819
  Receipt Date: 20191002
  Transmission Date: 20200122
  Serious: Yes (Hospitalization)
  Sender: FDA-Public Use
  Company Number: US-TAKEDA-2019TUS048432

PATIENT
  Sex: Male

DRUGS (1)
  1. VEDOLIZUMAB [Suspect]
     Active Substance: VEDOLIZUMAB
     Indication: COLITIS
     Dosage: 300 MILLIGRAM
     Route: 042

REACTIONS (8)
  - Heart rate increased [Unknown]
  - Somnolence [Unknown]
  - Malabsorption [Unknown]
  - Haemorrhage [Unknown]
  - Gastrointestinal surgery [Unknown]
  - Fatigue [Unknown]
  - Malnutrition [Unknown]
  - Malaise [Unknown]
